FAERS Safety Report 5973675-3 (Version None)
Quarter: 2008Q4

REPORT INFORMATION
  Report Type: 
  Country: None (occurrence: None)
  Receive Date: 20081201
  Receipt Date: 20081120
  Transmission Date: 20090506
  Serious: Yes (Hospitalization)
  Sender: FDA-Public Use
  Company Number: US-WYE-H06911308

PATIENT
  Age: 55 Year
  Sex: Female
  Weight: 100.79 kg

DRUGS (6)
  1. PREMPRO [Suspect]
     Indication: HORMONE REPLACEMENT THERAPY
     Dosage: 0.3/^1.65^ MG DAILY
     Route: 048
     Dates: start: 20080101
  2. ZOLOFT [Concomitant]
     Indication: INSOMNIA
     Route: 048
     Dates: start: 20040101
  3. ZOLOFT [Concomitant]
     Indication: DEPRESSION
  4. ELAVIL [Concomitant]
     Indication: INSOMNIA
     Route: 048
     Dates: start: 20081001
  5. ELAVIL [Concomitant]
     Indication: DEPRESSION
  6. SORIATANE [Suspect]
     Indication: PSORIASIS
     Route: 048
     Dates: start: 20081010, end: 20081101

REACTIONS (5)
  - DRY SKIN [None]
  - ERYTHEMA [None]
  - LIP DRY [None]
  - PAIN IN EXTREMITY [None]
  - PULMONARY EMBOLISM [None]
